FAERS Safety Report 9590310 (Version 1)
Quarter: 2013Q4

REPORT INFORMATION
  Report Type: Spontaneous
  Country: US (occurrence: US)
  Receive Date: 20131003
  Receipt Date: 20131003
  Transmission Date: 20140711
  Serious: No
  Sender: FDA-Public Use
  Company Number: US-AMGEN-USASP2012077119

PATIENT
  Age: 34 Year
  Sex: Female
  Weight: 52.15 kg

DRUGS (2)
  1. ENBREL [Suspect]
     Indication: PSORIATIC ARTHROPATHY
     Dosage: UNK
     Route: 058
     Dates: start: 2008, end: 2009
  2. ZYRTEC [Concomitant]
     Dosage: UNK

REACTIONS (1)
  - Chronic sinusitis [Unknown]
